FAERS Safety Report 11428996 (Version 1)
Quarter: 2015Q3

REPORT INFORMATION
  Report Type: Spontaneous
  Country: US (occurrence: None)
  Receive Date: 20150827
  Receipt Date: 20150827
  Transmission Date: 20151125
  Serious: No
  Sender: FDA-Public Use
  Company Number: None

PATIENT
  Age: 64 Year
  Sex: Female
  Weight: 90.72 kg

DRUGS (4)
  1. ADDERALL XR [Concomitant]
     Active Substance: AMPHETAMINE ASPARTATE\AMPHETAMINE SULFATE\DEXTROAMPHETAMINE SACCHARATE\DEXTROAMPHETAMINE SULFATE
  2. QUETIAPINE [Suspect]
     Active Substance: QUETIAPINE
     Indication: SLEEP DISORDER THERAPY
     Route: 048
     Dates: start: 20150824, end: 20150824
  3. SYNTHROID [Concomitant]
     Active Substance: LEVOTHYROXINE SODIUM
  4. PROMETHAZINE [Concomitant]
     Active Substance: PROMETHAZINE\PROMETHAZINE HYDROCHLORIDE

REACTIONS (9)
  - Dry throat [None]
  - Nasal congestion [None]
  - Product substitution issue [None]
  - Dyspnoea [None]
  - Dry mouth [None]
  - Feeling of body temperature change [None]
  - Nasopharyngitis [None]
  - Multiple allergies [None]
  - Feeling abnormal [None]

NARRATIVE: CASE EVENT DATE: 20150824
